FAERS Safety Report 4531328-2 (Version None)
Quarter: 2004Q4

REPORT INFORMATION
  Report Type: 
  Country: None (occurrence: None)
  Receive Date: 20041206
  Receipt Date: 20040914
  Transmission Date: 20050328
  Serious: No
  Sender: FDA-Public Use
  Company Number: USA040978144

PATIENT
  Age: 38 Year
  Sex: Female

DRUGS (8)
  1. CYMBALTA [Suspect]
     Indication: BIPOLAR II DISORDER
     Dosage: 60 MG IN THE MORNING
     Dates: start: 20040825
  2. CELEXA [Concomitant]
  3. PROVIGIL [Concomitant]
  4. BUSPAR [Concomitant]
  5. DEPAKOTE - SLOW RELEASE (VALPROATE SEMISODIUM) [Concomitant]
  6. TOPAMAX [Concomitant]
  7. AMBIEN [Concomitant]
  8. ATIVAN [Concomitant]

REACTIONS (6)
  - EUPHORIC MOOD [None]
  - FATIGUE [None]
  - IMPULSIVE BEHAVIOUR [None]
  - NAUSEA [None]
  - NEGATIVE THOUGHTS [None]
  - TREMOR [None]
